FAERS Safety Report 12104764 (Version 1)
Quarter: 2016Q1

REPORT INFORMATION
  Report Type: Spontaneous
  Country: GB (occurrence: GB)
  Receive Date: 20160223
  Receipt Date: 20160223
  Transmission Date: 20160526
  Serious: Yes (Other)
  Sender: FDA-Public Use
  Company Number: GB-TEVA-635616ACC

PATIENT
  Age: 62 Year
  Sex: Female
  Weight: 111 kg

DRUGS (7)
  1. ASPIRIN. [Concomitant]
     Active Substance: ASPIRIN
  2. PREDNISOLONE. [Interacting]
     Active Substance: PREDNISOLONE
     Indication: LUNG INFECTION
     Route: 048
  3. BREATH SALINE [Concomitant]
  4. AMOXICILLIN. [Concomitant]
     Active Substance: AMOXICILLIN
  5. SALBUTAMOL [Concomitant]
     Active Substance: ALBUTEROL
  6. FUROSEMIDE. [Concomitant]
     Active Substance: FUROSEMIDE
  7. CLARITHROMYCIN. [Suspect]
     Active Substance: CLARITHROMYCIN
     Indication: LUNG INFECTION
     Route: 048

REACTIONS (2)
  - Labelled drug-drug interaction medication error [Unknown]
  - Malaise [Unknown]

NARRATIVE: CASE EVENT DATE: 20150805
